FAERS Safety Report 19710019 (Version 1)
Quarter: 2021Q3

REPORT INFORMATION
  Report Type: Other
  Country: CA (occurrence: CA)
  Receive Date: 20210816
  Receipt Date: 20210816
  Transmission Date: 20211014
  Serious: Yes (Hospitalization)
  Sender: FDA-Public Use
  Company Number: CA-APOTEX-2021AP031957

PATIENT
  Age: 59 Year
  Sex: Male

DRUGS (1)
  1. CLOPIDOGREL [Suspect]
     Active Substance: CLOPIDOGREL BISULFATE
     Indication: EMBOLIC STROKE
     Dosage: UNK
     Route: 048

REACTIONS (4)
  - Eosinophilia [Unknown]
  - Rash pruritic [Unknown]
  - Drug eruption [Unknown]
  - Liver function test increased [Unknown]
